FAERS Safety Report 7423163-2 (Version None)
Quarter: 2011Q2

REPORT INFORMATION
  Report Type: 
  Country: None (occurrence: None)
  Receive Date: 20110419
  Receipt Date: 20110412
  Transmission Date: 20111010
  Serious: Yes (Other)
  Sender: FDA-Public Use
  Company Number: US-JNJFOC-20110405531

PATIENT
  Age: 51 Year
  Sex: Female
  Weight: 63.5 kg

DRUGS (3)
  1. LEVAQUIN [Suspect]
     Indication: BRONCHITIS
     Route: 048
  2. PREDNISONE [Concomitant]
     Indication: BRONCHITIS
     Route: 048
  3. THYROID THERAPY [Concomitant]
     Indication: THYROID DISORDER
     Route: 048

REACTIONS (8)
  - ANGINA PECTORIS [None]
  - ARTHRITIS [None]
  - PALPITATIONS [None]
  - PAIN [None]
  - WEIGHT BEARING DIFFICULTY [None]
  - ABASIA [None]
  - ARTHRALGIA [None]
  - PRURITUS [None]
